FAERS Safety Report 19964126 (Version 2)
Quarter: 2021Q4

REPORT INFORMATION
  Report Type: Report from Study
  Country: US (occurrence: US)
  Receive Date: 20211018
  Receipt Date: 20211104
  Transmission Date: 20220303
  Serious: Yes (Hospitalization)
  Sender: FDA-Public Use
  Company Number: US-JNJFOC-20211017272

PATIENT
  Age: 22 Year
  Sex: Female

DRUGS (1)
  1. SPRAVATO [Suspect]
     Active Substance: ESKETAMINE
     Indication: Depression
     Dosage: 6 DOSES
     Dates: start: 20210504, end: 20210525

REACTIONS (2)
  - Hospitalisation [Unknown]
  - Drug ineffective [Unknown]
